FAERS Safety Report 9461097 (Version 1)
Quarter: 2013Q3

REPORT INFORMATION
  Report Type: Spontaneous
  Country: FR (occurrence: FR)
  Receive Date: 20130816
  Receipt Date: 20130816
  Transmission Date: 20140515
  Serious: Yes (Death, Hospitalization)
  Sender: FDA-Public Use
  Company Number: FR-009507513-1308FRA001896

PATIENT
  Age: 65 Year
  Sex: Female

DRUGS (9)
  1. TEMODAL [Suspect]
     Indication: PRODUCT USED FOR UNKNOWN INDICATION
     Dosage: 150 MG, QD
     Route: 048
     Dates: start: 20130313, end: 20130426
  2. DEPAKINE [Concomitant]
     Dosage: UNK
     Route: 048
     Dates: end: 20130506
  3. TEMERIT [Concomitant]
     Indication: GLIOBLASTOMA
     Dosage: UNK
     Route: 048
     Dates: end: 20130507
  4. XANAX [Concomitant]
  5. IMOVANE [Concomitant]
  6. MEDROL [Concomitant]
  7. FORLAX [Concomitant]
  8. PRIMPERAN [Concomitant]
  9. INSULIN [Concomitant]

REACTIONS (1)
  - Pancytopenia [Fatal]
